FAERS Safety Report 11780080 (Version 1)
Quarter: 2015Q4

REPORT INFORMATION
  Report Type: Spontaneous
  Country: US (occurrence: US)
  Receive Date: 20151126
  Receipt Date: 20151126
  Transmission Date: 20160304
  Serious: No
  Sender: FDA-Public Use
  Company Number: US-JNJFOC-20151000444

PATIENT
  Age: 86 Year
  Sex: Female
  Weight: 51.71 kg

DRUGS (1)
  1. TYLENOL EXTRA STRENGTH [Suspect]
     Active Substance: ACETAMINOPHEN
     Indication: PAIN MANAGEMENT
     Dosage: 2 CAPLETS EVERY 6 HOURS, TAKES TOTAL OF 8 CAPLETS PER DAY
     Route: 048

REACTIONS (2)
  - Extra dose administered [Unknown]
  - Incorrect drug administration duration [Unknown]
